FAERS Safety Report 4402255-6 (Version None)
Quarter: 2004Q3

REPORT INFORMATION
  Report Type: 
  Country: None (occurrence: None)
  Receive Date: 20040715
  Receipt Date: 20040630
  Transmission Date: 20050211
  Serious: Yes (Life-Threatening, Hospitalization, Disabling)
  Sender: FDA-Public Use
  Company Number: WAES 0406ZAF00026

PATIENT
  Age: 61 Year
  Sex: Female

DRUGS (8)
  1. COZAAR [Suspect]
     Indication: CARDIAC FAILURE CONGESTIVE
     Dosage: PO
     Route: 048
     Dates: start: 20040316, end: 20040607
  2. ATENOLOL [Concomitant]
  3. ATORVASTATIN CALCIUM [Concomitant]
  4. FUROSEMIDE [Concomitant]
  5. GLICLAZIDE [Concomitant]
  6. INSULIN HUMAN, ISOPHANE [Concomitant]
  7. ISOSORBIDE DINITRATE [Concomitant]
  8. NIFEDIPINE [Concomitant]

REACTIONS (5)
  - BLOOD CREATININE INCREASED [None]
  - BLOOD UREA INCREASED [None]
  - HAEMOGLOBIN DECREASED [None]
  - RED BLOOD CELL SEDIMENTATION RATE INCREASED [None]
  - RIGHT VENTRICULAR FAILURE [None]
